FAERS Safety Report 18773800 (Version 2)
Quarter: 2021Q1

REPORT INFORMATION
  Report Type: Report from Study
  Country: GB (occurrence: GB)
  Receive Date: 20210122
  Receipt Date: 20210223
  Transmission Date: 20210419
  Serious: Yes (Other)
  Sender: FDA-Public Use
  Company Number: GB-TAKEDA-2020TUS040783

PATIENT
  Age: 34 Year
  Sex: Female

DRUGS (2)
  1. PENICILLIN V [PHENOXYMETHYLPENICILLIN] [Suspect]
     Active Substance: PENICILLIN V
     Indication: PHARYNGITIS
     Dosage: UNK
     Route: 065
  2. VEDOLIZUMAB [Suspect]
     Active Substance: VEDOLIZUMAB
     Indication: CROHN^S DISEASE
     Dosage: 108 MILLIGRAM, Q2WEEKS
     Route: 058

REACTIONS (8)
  - Injection site erythema [Unknown]
  - Faeces discoloured [Unknown]
  - Feeling cold [Unknown]
  - Pharyngitis [Unknown]
  - Injection site reaction [Unknown]
  - Mucous stools [Unknown]
  - Diarrhoea [Unknown]
  - Crohn^s disease [Unknown]
